FAERS Safety Report 8503512-4 (Version None)
Quarter: 2012Q3

REPORT INFORMATION
  Report Type: 
  Country: None (occurrence: None)
  Receive Date: 20120711
  Receipt Date: 20120630
  Transmission Date: 20120928
  Serious: Yes (Hospitalization)
  Sender: FDA-Public Use
  Company Number: US-CELGENEUS-163-21880-12070469

PATIENT
  Sex: Male
  Weight: 51.4 kg

DRUGS (19)
  1. FENTANYL [Concomitant]
     Route: 062
  2. ZOCOR [Concomitant]
     Route: 065
  3. ORAL RINSE [Concomitant]
     Route: 048
  4. DILANTIN [Concomitant]
     Route: 065
  5. ROXANOL [Concomitant]
     Route: 065
  6. OXYCODONE HCL [Concomitant]
     Route: 065
  7. KEPPRA [Concomitant]
     Route: 065
  8. PERI-COLACE [Concomitant]
     Route: 065
  9. ENOXAPARIN [Concomitant]
     Route: 065
  10. ASPIRIN [Concomitant]
     Route: 065
  11. MAGNESIUM SULFATE [Concomitant]
     Route: 065
  12. LOPRESSOR [Concomitant]
     Route: 065
  13. PHENOBARBITAL TAB [Concomitant]
     Route: 065
  14. REVLIMID [Suspect]
     Indication: HEAD AND NECK CANCER METASTATIC
     Dosage: 25 MILLIGRAM
     Route: 048
     Dates: start: 20110321
  15. CETUXIMAB [Suspect]
     Indication: HEAD AND NECK CANCER METASTATIC
     Dosage: 60.3571 MILLIGRAM
     Route: 041
     Dates: start: 20110322
  16. THIAMINE [Concomitant]
     Route: 065
  17. MULTI-VITAMINS [Concomitant]
     Route: 065
  18. POTASSIUM CHLORIDE [Concomitant]
     Route: 065
  19. NEXIUM [Concomitant]
     Route: 065

REACTIONS (2)
  - FAILURE TO THRIVE [None]
  - ASTHENIA [None]
